FAERS Safety Report 9837616 (Version 1)
Quarter: 2014Q1

REPORT INFORMATION
  Report Type: Spontaneous
  Country: FR (occurrence: FR)
  Receive Date: 20140123
  Receipt Date: 20140123
  Transmission Date: 20141002
  Serious: Yes (Death)
  Sender: FDA-Public Use
  Company Number: FR-BAYER-2014-007258

PATIENT
  Age: 91 Year
  Sex: Female

DRUGS (2)
  1. CIFLOX [Suspect]
     Indication: BACTERIAL SEPSIS
     Dosage: UNK
     Dates: start: 20131124, end: 20131124
  2. TIENAM [Suspect]
     Indication: BACTERIAL SEPSIS
     Dosage: UNK
     Route: 042
     Dates: start: 20131124, end: 20131128

REACTIONS (2)
  - Septic shock [Fatal]
  - Pancytopenia [Fatal]
